FAERS Safety Report 14326381 (Version 1)
Quarter: 2017Q4

REPORT INFORMATION
  Report Type: Spontaneous
  Country: US (occurrence: US)
  Receive Date: 20171227
  Receipt Date: 20171227
  Transmission Date: 20180321
  Serious: No
  Sender: FDA-Public Use
  Company Number: US-ASTRAZENECA-2017SF23072

PATIENT
  Age: 49 Year
  Sex: Female

DRUGS (23)
  1. TENORMIN [Concomitant]
     Active Substance: ATENOLOL
  2. PHOSLO [Concomitant]
     Active Substance: CALCIUM ACETATE
  3. NEXIUM [Concomitant]
     Active Substance: ESOMEPRAZOLE MAGNESIUM
  4. ZANAFLEX [Concomitant]
     Active Substance: TIZANIDINE HYDROCHLORIDE
  5. OXISTAT [Concomitant]
     Active Substance: OXICONAZOLE NITRATE
  6. PRAVACHOL [Concomitant]
     Active Substance: PRAVASTATIN SODIUM
  7. BUSPAR [Concomitant]
     Active Substance: BUSPIRONE HYDROCHLORIDE
  8. LYRICA [Concomitant]
     Active Substance: PREGABALIN
  9. ASPIRIN. [Concomitant]
     Active Substance: ASPIRIN
  10. FLONASE [Concomitant]
     Active Substance: FLUTICASONE PROPIONATE
  11. STROMECTOL [Concomitant]
     Active Substance: IVERMECTIN
  12. THERAGRAN [Concomitant]
     Active Substance: VITAMINS
  13. LIDEX [Concomitant]
     Active Substance: FLUOCINONIDE
  14. LISINOPRIL. [Suspect]
     Active Substance: LISINOPRIL
     Route: 048
  15. CRESTOR [Suspect]
     Active Substance: ROSUVASTATIN CALCIUM
     Route: 048
  16. VITAMIN D3 [Concomitant]
     Active Substance: CHOLECALCIFEROL
  17. LOTRISONE [Concomitant]
     Active Substance: BETAMETHASONE DIPROPIONATE\CLOTRIMAZOLE
  18. VITAMIN E [Concomitant]
     Active Substance: .ALPHA.-TOCOPHEROL
  19. VITAMIN A [Concomitant]
     Active Substance: VITAMIN A
  20. ALLOPURINOL. [Concomitant]
     Active Substance: ALLOPURINOL
  21. HVGROTON [Concomitant]
  22. ANTIVERT [Concomitant]
     Active Substance: MECLIZINE HYDROCHLORIDE
  23. NAPROSYN [Concomitant]
     Active Substance: NAPROXEN

REACTIONS (2)
  - Pruritus [Unknown]
  - Swelling [Unknown]
